FAERS Safety Report 11120313 (Version 1)
Quarter: 2015Q2

REPORT INFORMATION
  Report Type: Spontaneous
  Country: US (occurrence: US)
  Receive Date: 20150518
  Receipt Date: 20150518
  Transmission Date: 20150821
  Serious: No
  Sender: FDA-Public Use
  Company Number: US-BAUSCH-SYM-2014-24072

PATIENT
  Age: 28 Year
  Sex: Female
  Weight: 59.02 kg

DRUGS (3)
  1. ELIDEL [Suspect]
     Active Substance: PIMECROLIMUS
     Indication: DERMATITIS
     Route: 061
     Dates: start: 2014
  2. ELIDEL [Suspect]
     Active Substance: PIMECROLIMUS
     Indication: ROSACEA
  3. BIRTH CONTROL PILLS [Concomitant]
     Active Substance: UNSPECIFIED INGREDIENT
     Indication: PRODUCT USED FOR UNKNOWN INDICATION
     Dates: start: 2001

REACTIONS (1)
  - Rash [Not Recovered/Not Resolved]
